FAERS Safety Report 4496237-6 (Version None)
Quarter: 2004Q4

REPORT INFORMATION
  Report Type: 
  Country: None (occurrence: None)
  Receive Date: 20041109
  Receipt Date: 20041028
  Transmission Date: 20050328
  Serious: Yes (Death)
  Sender: FDA-Public Use
  Company Number: US-JNJFOC-20041100083

PATIENT
  Sex: Male

DRUGS (8)
  1. INFLIXIMAB [Suspect]
     Route: 042
  2. INFLIXIMAB [Suspect]
     Indication: RHEUMATOID ARTHRITIS
     Route: 042
  3. NEURONTIN [Concomitant]
  4. MOBIC [Concomitant]
  5. LISINOPRIL [Concomitant]
  6. VITAMIN C [Concomitant]
  7. VITAMIN D [Concomitant]
  8. MSM [Concomitant]

REACTIONS (1)
  - LYMPHOMA [None]
